FAERS Safety Report 5821487-3 (Version None)
Quarter: 2008Q3

REPORT INFORMATION
  Report Type: 
  Country: None (occurrence: None)
  Receive Date: 20080724
  Receipt Date: 20080723
  Transmission Date: 20090109
  Serious: Yes (Death)
  Sender: FDA-Public Use
  Company Number: JP-BRISTOL-MYERS SQUIBB COMPANY-14274534

PATIENT
  Age: 77 Year
  Sex: Female

DRUGS (2)
  1. AVAPRO [Suspect]
     Indication: HYPERTENSION
     Dosage: FROM 01JUL08-07JUL08 100MG/D, 08JUL08-19JUL08 200MG/D.
     Route: 048
     Dates: start: 20080708, end: 20080719
  2. RISPERDAL [Concomitant]
     Dosage: 1 DOSAGEFORM = 0.5 DOSAGEFORM
     Route: 048

REACTIONS (1)
  - CEREBROVASCULAR ACCIDENT [None]
